FAERS Safety Report 10085060 (Version 2)
Quarter: 2014Q3

REPORT INFORMATION
  Report Type: Spontaneous
  Country: FR (occurrence: FR)
  Receive Date: 20140417
  Receipt Date: 20140910
  Transmission Date: 20150326
  Serious: Yes (Congenital Anomaly, Other)
  Sender: FDA-Public Use
  Company Number: FR-ABBVIE-14P-056-1226863-00

PATIENT
  Sex: Male

DRUGS (1)
  1. DEPAKINE [Suspect]
     Active Substance: VALPROATE SODIUM
     Indication: MATERNAL EXPOSURE TIMING UNSPECIFIED
     Route: 064

REACTIONS (16)
  - Multiple congenital abnormalities [Unknown]
  - Psychomotor retardation [Unknown]
  - Adverse event [Unknown]
  - Plagiocephaly [Unknown]
  - Micturition urgency [Unknown]
  - Ear malformation [Unknown]
  - Finger deformity [Unknown]
  - Speech disorder developmental [Unknown]
  - Foetal exposure during pregnancy [Unknown]
  - Learning disorder [Unknown]
  - Arnold-Chiari malformation [Unknown]
  - Heart disease congenital [Unknown]
  - Dysmorphism [Unknown]
  - Clinodactyly [Unknown]
  - Developmental delay [Unknown]
  - Motor developmental delay [Unknown]

NARRATIVE: CASE EVENT DATE: 20011030
